FAERS Safety Report 9716664 (Version 1)
Quarter: 2013Q4

REPORT INFORMATION
  Report Type: Spontaneous
  Country: NL (occurrence: NL)
  Receive Date: 20131127
  Receipt Date: 20131127
  Transmission Date: 20140711
  Serious: Yes (Other)
  Sender: FDA-Public Use
  Company Number: NL-AMGEN-NLDSP2013082829

PATIENT
  Age: 71 Year
  Sex: Female

DRUGS (8)
  1. XGEVA [Suspect]
     Indication: PRODUCT USED FOR UNKNOWN INDICATION
     Dosage: 120 MG, Q4WK
     Route: 058
     Dates: start: 20121119
  2. XGEVA [Suspect]
     Dosage: 120 MG, Q4WK
     Route: 058
  3. XGEVA [Suspect]
     Dosage: 120 MG, Q4WK
     Route: 058
  4. XGEVA [Suspect]
     Dosage: 120 MG, Q4WK
     Route: 058
  5. VENLAFAXINE [Concomitant]
     Dosage: 75 MG, UNK
  6. OMEPRAZOLE [Concomitant]
     Dosage: 20 MG, UNK
  7. CALCI CHEW [Concomitant]
  8. MULTIVITAMIN                       /00097801/ [Concomitant]

REACTIONS (4)
  - Neoplasm progression [Unknown]
  - Gastrointestinal pain [Unknown]
  - Defaecation urgency [Unknown]
  - Abnormal faeces [Unknown]
